FAERS Safety Report 6286315-3 (Version None)
Quarter: 2009Q3

REPORT INFORMATION
  Report Type: 
  Country: None (occurrence: None)
  Receive Date: 20090724
  Receipt Date: 20071105
  Transmission Date: 20100115
  Serious: Yes (Other)
  Sender: FDA-Public Use
  Company Number: 2009-0810

PATIENT
  Age: 10 Year
  Sex: Male
  Weight: 28.8 kg

DRUGS (8)
  1. INCRELEX [Suspect]
     Dosage: SEE IMAGE
     Route: 058
     Dates: start: 20070518, end: 20070531
  2. INCRELEX [Suspect]
     Dosage: SEE IMAGE
     Route: 058
     Dates: start: 20070601, end: 20070610
  3. INCRELEX [Suspect]
     Dosage: SEE IMAGE
     Route: 058
     Dates: start: 20070611, end: 20070615
  4. CONCERTA [Concomitant]
  5. ALLEGRA [Concomitant]
  6. FLONASE PRAY (FLUTICASONE PROPIONATE) [Concomitant]
  7. GUMMY BEARS MULTIVITAMIN AND MINERAL (MULTIVITAMIN AND MINERAL SUPPLEM [Concomitant]
  8. OMEGA 3 AND 6 (CARBINOXAMINE MALEATE) [Concomitant]

REACTIONS (6)
  - BACK PAIN [None]
  - FACIAL PALSY [None]
  - GENERALISED OEDEMA [None]
  - JAW DISORDER [None]
  - NERVE COMPRESSION [None]
  - OEDEMA PERIPHERAL [None]
